FAERS Safety Report 4306862-0 (Version None)
Quarter: 2004Q1

REPORT INFORMATION
  Report Type: 
  Country: None (occurrence: None)
  Receive Date: 20040227
  Receipt Date: 20040227
  Transmission Date: 20041129
  Serious: Yes (Other)
  Sender: FDA-Public Use
  Company Number: None

PATIENT
  Sex: Female
  Weight: 65.7716 kg

DRUGS (2)
  1. ALBUTEROL VIALS HOLPACK INTERNATIONAL [Suspect]
     Indication: BRONCHITIS CHRONIC
  2. IPRATROPIUM/ALBUTEROL [Suspect]

REACTIONS (1)
  - MEDICATION ERROR [None]
